FAERS Safety Report 9630237 (Version 2)
Quarter: 2013Q4

REPORT INFORMATION
  Report Type: Report from Study
  Country: US (occurrence: US)
  Receive Date: 20131017
  Receipt Date: 20131209
  Transmission Date: 20140711
  Serious: Yes (Other)
  Sender: FDA-Public Use
  Company Number: US-ABBVIE-13P-163-1159015-00

PATIENT
  Age: 70 Year
  Sex: Female

DRUGS (9)
  1. HUMIRA [Suspect]
     Indication: CROHN^S DISEASE
     Route: 058
     Dates: start: 20130823, end: 20131004
  2. HUMIRA [Suspect]
     Route: 058
     Dates: start: 20131122
  3. PROTONIX [Concomitant]
     Indication: PRODUCT USED FOR UNKNOWN INDICATION
     Dosage: 20MG DAILY
  4. VITAMIN D [Concomitant]
     Indication: PRODUCT USED FOR UNKNOWN INDICATION
     Dosage: 1000MG DAILY
  5. PREDNISONE [Concomitant]
     Indication: PRODUCT USED FOR UNKNOWN INDICATION
     Dosage: 10MG DAILY
  6. DIFLUCAN [Concomitant]
     Indication: ILEOSTOMY
     Dosage: EVERY TUESDAY AND SATURDAY
  7. FORTEO [Concomitant]
     Indication: OSTEOPOROSIS
     Dosage: BEDTIME
     Route: 058
  8. TRIMPEX [Concomitant]
     Indication: URINARY TRACT INFECTION
     Dosage: BEDTIME
  9. TPN WITH PICC LINE [Concomitant]
     Indication: PRODUCT USED FOR UNKNOWN INDICATION
     Dates: start: 20130808

REACTIONS (1)
  - Colonic fistula [Recovered/Resolved]
